FAERS Safety Report 6348912-6 (Version None)
Quarter: 2009Q3

REPORT INFORMATION
  Report Type: 
  Country: None (occurrence: None)
  Receive Date: 20090908
  Receipt Date: 20090826
  Transmission Date: 20100115
  Serious: Yes (Hospitalization)
  Sender: FDA-Public Use
  Company Number: 230144J09USA

PATIENT
  Age: 49 Year
  Sex: Male

DRUGS (3)
  1. REBIF [Suspect]
     Indication: MULTIPLE SCLEROSIS
     Dosage: 44 MCG, 3 IN 1 WEEKS, SUBCUTANEOUS
     Route: 058
     Dates: start: 20090413
  2. PRAVASTATIN [Concomitant]
  3. CITALOPRAM (CITALOPRAM /00582601/) [Concomitant]

REACTIONS (5)
  - AMNESIA [None]
  - COLLAPSE OF LUNG [None]
  - LACERATION [None]
  - RIB FRACTURE [None]
  - ROAD TRAFFIC ACCIDENT [None]
